FAERS Safety Report 7015728-7 (Version None)
Quarter: 2010Q3

REPORT INFORMATION
  Report Type: 
  Country: None (occurrence: None)
  Receive Date: 20100927
  Receipt Date: 20100412
  Transmission Date: 20110219
  Serious: No
  Sender: FDA-Public Use
  Company Number: US-ASTRAZENECA-2010SE15972

PATIENT
  Age: 70 Year
  Sex: Female
  Weight: 52.2 kg

DRUGS (3)
  1. ARIMIDEX [Suspect]
     Indication: BREAST CANCER
     Route: 048
     Dates: start: 20050301, end: 20100301
  2. XANAX [Concomitant]
  3. EXTRA STRENTH TYLENOL [Concomitant]
     Indication: ARTHRALGIA

REACTIONS (3)
  - ARTHRALGIA [None]
  - MUSCULAR WEAKNESS [None]
  - VULVOVAGINAL DRYNESS [None]
